FAERS Safety Report 24613476 (Version 5)
Quarter: 2025Q1

REPORT INFORMATION
  Report Type: Report from Study
  Country: US (occurrence: US)
  Receive Date: 20241113
  Receipt Date: 20250204
  Transmission Date: 20250408
  Serious: Yes (Other)
  Sender: TAKEDA
  Company Number: US-TAKEDA-2024TUS113971

PATIENT
  Sex: Male

DRUGS (12)
  1. PONATINIB [Suspect]
     Active Substance: PONATINIB
     Indication: Acute lymphocytic leukaemia
     Dosage: 45 MILLIGRAM, QD
  2. PONATINIB [Suspect]
     Active Substance: PONATINIB
     Dosage: 45 MILLIGRAM, QD
  3. PONATINIB [Suspect]
     Active Substance: PONATINIB
     Dosage: 45 MILLIGRAM, QD
  4. PONATINIB [Suspect]
     Active Substance: PONATINIB
     Dosage: 45 MILLIGRAM, QD
  5. ALLOPURINOL [Concomitant]
     Active Substance: ALLOPURINOL
  6. KEFLEX [Concomitant]
     Active Substance: CEPHALEXIN
  7. CETIRIZINE HCL [Concomitant]
     Active Substance: CETIRIZINE HYDROCHLORIDE
  8. CIPROFLOXACIN HYDROCHLORIDE [Concomitant]
     Active Substance: CIPROFLOXACIN HYDROCHLORIDE
  9. DEXAMETHASONE [Concomitant]
     Active Substance: DEXAMETHASONE
  10. FLUCONAZOLE [Concomitant]
     Active Substance: FLUCONAZOLE
  11. VITAMIN D [Concomitant]
     Active Substance: VITAMIN D NOS
  12. ACYCLOVIR [Concomitant]
     Active Substance: ACYCLOVIR

REACTIONS (2)
  - Acute lymphocytic leukaemia recurrent [Unknown]
  - Pollakiuria [Unknown]
